FAERS Safety Report 18525395 (Version 1)
Quarter: 2020Q4

REPORT INFORMATION
  Report Type: Spontaneous
  Country: US (occurrence: US)
  Receive Date: 20201119
  Receipt Date: 20201119
  Transmission Date: 20210114
  Serious: No
  Sender: FDA-Public Use
  Company Number: US-SA-2020SA324143

PATIENT

DRUGS (4)
  1. DUPIXENT [Suspect]
     Active Substance: DUPILUMAB
     Indication: DERMATITIS ATOPIC
     Dosage: UNK UNK, 1X
     Route: 058
     Dates: start: 2020, end: 2020
  2. PROLIA [Concomitant]
     Active Substance: DENOSUMAB
  3. VITAMINS NOS [Concomitant]
     Active Substance: VITAMINS
  4. DUPIXENT [Suspect]
     Active Substance: DUPILUMAB
     Dosage: 300 MG, QOW
     Route: 058
     Dates: start: 202010

REACTIONS (4)
  - Dizziness [Recovered/Resolved]
  - Injection site induration [Recovered/Resolved]
  - Dyspnoea [Recovered/Resolved]
  - Injection site inflammation [Recovered/Resolved]

NARRATIVE: CASE EVENT DATE: 2020
